FAERS Safety Report 15540839 (Version 1)
Quarter: 2018Q4

REPORT INFORMATION
  Report Type: Spontaneous
  Country: AU (occurrence: AU)
  Receive Date: 20181023
  Receipt Date: 20181023
  Transmission Date: 20190205
  Serious: Yes (Other)
  Sender: FDA-Public Use
  Company Number: PHHY2018AU133908

PATIENT
  Sex: Female

DRUGS (2)
  1. MYCOPHENOLATE MOFETIL. [Suspect]
     Active Substance: MYCOPHENOLATE MOFETIL
     Indication: METASTATIC MALIGNANT MELANOMA
     Dosage: 500 MG, BID
     Route: 065
     Dates: start: 201809
  2. METHYLPREDNISOLONE. [Suspect]
     Active Substance: METHYLPREDNISOLONE
     Indication: METASTATIC MALIGNANT MELANOMA
     Dosage: UNK
     Route: 065
     Dates: start: 201809

REACTIONS (4)
  - Visual impairment [Unknown]
  - Malignant neoplasm progression [Unknown]
  - Metastatic malignant melanoma [Unknown]
  - Metastases to bone [Unknown]
